FAERS Safety Report 13887798 (Version 1)
Quarter: 2017Q3

REPORT INFORMATION
  Report Type: Spontaneous
  Country: US (occurrence: US)
  Receive Date: 20170821
  Receipt Date: 20170821
  Transmission Date: 20171127
  Serious: Yes (Hospitalization)
  Sender: FDA-Public Use
  Company Number: US-ARALEZ PHARMACEUTICALS R+D INC.-2017-ARA-000134

PATIENT

DRUGS (4)
  1. BABY ASPIRIN [Concomitant]
     Active Substance: ASPIRIN
     Indication: CARDIAC DISORDER
     Dosage: UNK
     Route: 048
     Dates: start: 200901
  2. METOPROLOL SUCCINATE. [Suspect]
     Active Substance: METOPROLOL SUCCINATE
     Indication: PALPITATIONS
     Dosage: 12.5 MG, BID
     Route: 048
     Dates: start: 201603
  3. BRILINTA [Suspect]
     Active Substance: TICAGRELOR
     Indication: CORONARY ARTERY DISEASE
     Dosage: 90 MG, BID
     Route: 048
     Dates: start: 201603
  4. LIPITOR [Concomitant]
     Active Substance: ATORVASTATIN CALCIUM
     Indication: BLOOD CHOLESTEROL DECREASED
     Dosage: UNK
     Route: 048
     Dates: start: 200901

REACTIONS (2)
  - Myocardial infarction [Recovering/Resolving]
  - Off label use [Not Recovered/Not Resolved]

NARRATIVE: CASE EVENT DATE: 20170417
